FAERS Safety Report 21782125 (Version 1)
Quarter: 2022Q4

REPORT INFORMATION
  Report Type: Spontaneous
  Country: US (occurrence: None)
  Receive Date: 20221227
  Receipt Date: 20221227
  Transmission Date: 20230113
  Serious: Yes (Hospitalization, Other)
  Sender: FDA-Public Use
  Company Number: US-MLMSERVICE-20221209-3971538-1

PATIENT
  Age: 77 Year
  Sex: Male

DRUGS (2)
  1. AMIODARONE [Suspect]
     Active Substance: AMIODARONE
     Indication: Cardiac arrest
     Dosage: 200-ML SOLUTION (1.8 MG/ML) IN 5% DEXTROSE
     Route: 042
  2. DEXTROSE [Concomitant]
     Active Substance: DEXTROSE
     Indication: Cardiac arrest
     Route: 042

REACTIONS (5)
  - Infusion site necrosis [Recovering/Resolving]
  - Skin necrosis [Recovering/Resolving]
  - Eschar [Recovering/Resolving]
  - Sensory loss [Recovering/Resolving]
  - Arm amputation [Recovering/Resolving]
